FAERS Safety Report 11221412 (Version 1)
Quarter: 2015Q2

REPORT INFORMATION
  Report Type: Spontaneous
  Country: CH (occurrence: CH)
  Receive Date: 20150626
  Receipt Date: 20150626
  Transmission Date: 20150821
  Serious: Yes (Other)
  Sender: FDA-Public Use
  Company Number: CH-SA-2015SA029738

PATIENT
  Age: 9 Year
  Sex: Female
  Weight: 29 kg

DRUGS (5)
  1. MERIEUX [Suspect]
     Active Substance: RABIES VACCINE\RABIES VIRUS STRAIN PM-1503-3M ANTIGEN (PROPIOLACTONE INACTIVATED)
     Indication: IMMUNISATION
     Route: 030
     Dates: start: 20140407, end: 20140407
  2. MERIEUX [Suspect]
     Active Substance: RABIES VACCINE\RABIES VIRUS STRAIN PM-1503-3M ANTIGEN (PROPIOLACTONE INACTIVATED)
     Indication: IMMUNISATION
     Route: 030
     Dates: start: 20140416, end: 20140416
  3. MERIEUX [Suspect]
     Active Substance: RABIES VACCINE\RABIES VIRUS STRAIN PM-1503-3M ANTIGEN (PROPIOLACTONE INACTIVATED)
     Indication: IMMUNISATION
     Route: 030
     Dates: start: 20140404, end: 20140404
  4. RABIPUR [Suspect]
     Active Substance: RABIES VIRUS STRAIN FLURY LEP ANTIGEN (PROPIOLACTONE INACTIVATED)
     Indication: IMMUNISATION
     Route: 030
     Dates: start: 20140401, end: 20140401
  5. HUMAN RABIES IMMUNOGLOBULIN [Suspect]
     Active Substance: RABIES IMMUNE GLOBULIN (HUMAN)
     Indication: IMMUNISATION
     Route: 030
     Dates: start: 20140401, end: 20140401

REACTIONS (2)
  - Visual acuity reduced [Recovered/Resolved]
  - Nystagmus [Recovered/Resolved]

NARRATIVE: CASE EVENT DATE: 201404
